FAERS Safety Report 16116200 (Version 1)
Quarter: 2019Q1

REPORT INFORMATION
  Report Type: Spontaneous
  Country: US (occurrence: US)
  Receive Date: 20190326
  Receipt Date: 20190326
  Transmission Date: 20190418
  Serious: No
  Sender: FDA-Public Use
  Company Number: US-ELI_LILLY_AND_COMPANY-US201901009868

PATIENT
  Sex: Female

DRUGS (2)
  1. HUMALOG KWIKPEN [Suspect]
     Active Substance: INSULIN LISPRO
     Indication: TYPE 1 DIABETES MELLITUS
     Dosage: 10 U, QID
     Route: 058
     Dates: start: 20181226
  2. HUMALOG KWIKPEN [Suspect]
     Active Substance: INSULIN LISPRO
     Dosage: UNK UNK, UNKNOWN (4 OR 5 UNITS AND THEN HAVING TO DOSE AGAINWITH 5 UNITS)
     Route: 058

REACTIONS (3)
  - Blood glucose increased [Unknown]
  - Hypersensitivity [Unknown]
  - Drug ineffective [Unknown]
